FAERS Safety Report 8390272-3 (Version None)
Quarter: 2012Q2

REPORT INFORMATION
  Report Type: 
  Country: None (occurrence: None)
  Receive Date: 20120518
  Receipt Date: 20120509
  Transmission Date: 20120825
  Serious: Yes (Other)
  Sender: FDA-Public Use
  Company Number: 2012SP024655

PATIENT
  Age: 78 Year
  Sex: Male

DRUGS (3)
  1. TEMODAL [Suspect]
     Indication: GLIOBLASTOMA
     Dosage: 120 MG;QD;PO 260 MG;QD;PO
     Route: 048
     Dates: start: 20120409, end: 20120507
  2. TEMODAL [Suspect]
     Indication: GLIOBLASTOMA
     Dosage: 120 MG;QD;PO 260 MG;QD;PO
     Route: 048
     Dates: start: 20120301, end: 20120408
  3. TEMODAL [Suspect]
     Indication: GLIOBLASTOMA
     Dosage: 120 MG;QD;PO 260 MG;QD;PO
     Route: 048
     Dates: start: 20120201, end: 20120301

REACTIONS (7)
  - LOSS OF CONSCIOUSNESS [None]
  - FATIGUE [None]
  - NASOPHARYNGITIS [None]
  - INSOMNIA [None]
  - APHASIA [None]
  - NAUSEA [None]
  - HEARING IMPAIRED [None]
